FAERS Safety Report 6434371-1 (Version None)
Quarter: 2009Q4

REPORT INFORMATION
  Report Type: 
  Country: None (occurrence: None)
  Receive Date: 20091110
  Receipt Date: 20090427
  Transmission Date: 20100525
  Serious: No
  Sender: FDA-Public Use
  Company Number: US-ASTRAZENECA-2009SE08912

PATIENT
  Sex: Female

DRUGS (8)
  1. PRILOSEC OTC [Suspect]
     Dosage: 1 TABLET, 1 /DAY
     Route: 048
     Dates: start: 20090423, end: 20090423
  2. PRILOSEC OTC [Suspect]
     Dosage: 1 TABLET, 1 /DAY
     Route: 048
     Dates: start: 20090426, end: 20090427
  3. ADVAIR DISKUS 100/50 [Concomitant]
     Dosage: UNKNOWN
  4. ATROVENT HCTZ [Concomitant]
     Dosage: UNKNOWN
  5. FLUARIX [Concomitant]
     Dosage: UNKNOWN
  6. PREDNISONE [Concomitant]
     Dosage: UNKNOWN
  7. ASPIRIN [Concomitant]
     Dosage: 81 MG, UNK FREQ
  8. ALBUTEROL [Concomitant]

REACTIONS (3)
  - INAPPROPRIATE SCHEDULE OF DRUG ADMINISTRATION [None]
  - MALAISE [None]
  - NAUSEA [None]
